FAERS Safety Report 4490456-0 (Version None)
Quarter: 2004Q4

REPORT INFORMATION
  Report Type: 
  Country: None (occurrence: None)
  Receive Date: 20041028
  Receipt Date: 20041021
  Transmission Date: 20050328
  Serious: Yes (Death, Hospitalization)
  Sender: FDA-Public Use
  Company Number: 2004SE05866

PATIENT
  Age: 74 Year
  Sex: Male

DRUGS (6)
  1. SEROQUEL [Suspect]
     Indication: DEMENTIA ALZHEIMER'S TYPE
     Dosage: 50 MG DAILY PO
     Route: 048
     Dates: start: 20040101, end: 20040927
  2. AMIKACINA [Concomitant]
  3. VELAMOX [Concomitant]
  4. CLAFORAN [Concomitant]
  5. AMPLITAL [Concomitant]
  6. ROCEPHIN [Concomitant]

REACTIONS (8)
  - ACUTE PULMONARY OEDEMA [None]
  - CONVULSION [None]
  - GENERAL PHYSICAL HEALTH DETERIORATION [None]
  - MENINGITIS BACTERIAL [None]
  - MYOCARDIAL INFARCTION [None]
  - MYOCARDIAL ISCHAEMIA [None]
  - PYREXIA [None]
  - TROPONIN INCREASED [None]
